FAERS Safety Report 15891526 (Version 1)
Quarter: 2019Q1

REPORT INFORMATION
  Report Type: Spontaneous
  Country: US (occurrence: US)
  Receive Date: 20190130
  Receipt Date: 20190130
  Transmission Date: 20190417
  Serious: No
  Sender: FDA-Public Use
  Company Number: US-ALLERGAN-1839017US

PATIENT

DRUGS (3)
  1. VIIBRYD [Suspect]
     Active Substance: VILAZODONE HYDROCHLORIDE
     Indication: MAJOR DEPRESSION
     Dosage: 10 MG, UNK
     Route: 065
  2. NEFAZODONE [Concomitant]
     Active Substance: NEFAZODONE
     Dosage: 450 MG, UNK
  3. VIIBRYD [Suspect]
     Active Substance: VILAZODONE HYDROCHLORIDE
     Indication: ANXIETY
     Dosage: 5 MG, UNK
     Route: 065

REACTIONS (3)
  - Incorrect dose administered [Unknown]
  - Off label use [Unknown]
  - Withdrawal syndrome [Unknown]
